FAERS Safety Report 5887091-6 (Version None)
Quarter: 2008Q3

REPORT INFORMATION
  Report Type: 
  Country: None (occurrence: None)
  Receive Date: 20080917
  Receipt Date: 20080908
  Transmission Date: 20090109
  Serious: Yes (Hospitalization)
  Sender: FDA-Public Use
  Company Number: GB-PFIZER INC-2008014729

PATIENT
  Sex: Male

DRUGS (5)
  1. MARAVIROC [Suspect]
     Dates: start: 20071216
  2. CYCLOPHOSPHAMIDE [Suspect]
     Dates: start: 20071216, end: 20080104
  3. TMC-114 [Suspect]
     Dates: start: 20071216, end: 20080104
  4. LAMIVUDINE [Suspect]
     Dates: start: 20071216
  5. RALTEGRAVIR [Suspect]
     Route: 048
     Dates: start: 20071216

REACTIONS (1)
  - STEVENS-JOHNSON SYNDROME [None]
